FAERS Safety Report 10057438 (Version 2)
Quarter: 2014Q2

REPORT INFORMATION
  Report Type: Spontaneous
  Country: US (occurrence: US)
  Receive Date: 20140403
  Receipt Date: 20140613
  Transmission Date: 20141212
  Serious: Yes (Death, Life-Threatening, Other)
  Sender: FDA-Public Use
  Company Number: PHHY2014US040595

PATIENT
  Age: 51 Year
  Sex: Male

DRUGS (5)
  1. CICLOSPORIN [Suspect]
     Indication: IMMUNOSUPPRESSION
  2. MYCOPHENOLATE MOFETIL [Suspect]
     Indication: IMMUNOSUPPRESSION
  3. PREDNISONE [Suspect]
     Indication: IMMUNOSUPPRESSION
  4. RIBAVIRIN [Suspect]
     Indication: HEPATITIS C
  5. PEGYLATED INTERFERON ALFA-2A [Suspect]
     Indication: HEPATITIS C

REACTIONS (5)
  - Sepsis [Fatal]
  - Glomerulonephritis [Unknown]
  - Renal transplant failure [Unknown]
  - Hepatitis C [Unknown]
  - No therapeutic response [Unknown]
